FAERS Safety Report 8761490 (Version 2)
Quarter: 2013Q4

REPORT INFORMATION
  Report Type: Spontaneous
  Country: US (occurrence: US)
  Receive Date: 20120830
  Receipt Date: 20131101
  Transmission Date: 20140711
  Serious: No
  Sender: FDA-Public Use
  Company Number: US-009507513-1208USA010715

PATIENT
  Sex: Female

DRUGS (3)
  1. SAPHRIS [Suspect]
     Indication: BIPOLAR DISORDER
     Dosage: 5 MG, QD
     Route: 060
  2. SAPHRIS [Suspect]
     Indication: SCHIZOPHRENIA
  3. ZYPREXA [Concomitant]

REACTIONS (2)
  - Muscle tightness [Unknown]
  - Underdose [Unknown]
